FAERS Safety Report 10835516 (Version 1)
Quarter: 2015Q1

REPORT INFORMATION
  Report Type: Report from Study
  Country: US (occurrence: US)
  Receive Date: 20150219
  Receipt Date: 20150219
  Transmission Date: 20150721
  Serious: No
  Sender: FDA-Public Use
  Company Number: US-ABBVIE-14P-163-1201608-00

PATIENT
  Age: 52 Year
  Sex: Male
  Weight: 119.86 kg

DRUGS (3)
  1. HUMIRA [Suspect]
     Active Substance: ADALIMUMAB
     Indication: PSORIASIS
  2. HUMIRA [Suspect]
     Active Substance: ADALIMUMAB
     Indication: RHEUMATOID ARTHRITIS
     Dates: start: 2009, end: 201312
  3. HUMIRA [Suspect]
     Active Substance: ADALIMUMAB
     Indication: CROHN^S DISEASE

REACTIONS (11)
  - Ear infection [Recovered/Resolved]
  - Myalgia [Not Recovered/Not Resolved]
  - Injury [Unknown]
  - Pain in extremity [Not Recovered/Not Resolved]
  - Back pain [Not Recovered/Not Resolved]
  - Fatigue [Not Recovered/Not Resolved]
  - Weight increased [Recovering/Resolving]
  - Ear pain [Recovered/Resolved]
  - Blood testosterone decreased [Unknown]
  - Haematoma [Recovered/Resolved]
  - Ear injury [Recovered/Resolved]

NARRATIVE: CASE EVENT DATE: 2013
